FAERS Safety Report 7747741-6 (Version None)
Quarter: 2011Q3

REPORT INFORMATION
  Report Type: 
  Country: None (occurrence: None)
  Receive Date: 20110913
  Receipt Date: 20110906
  Transmission Date: 20111222
  Serious: Yes (Other)
  Sender: FDA-Public Use
  Company Number: CHPA2006US11736

PATIENT
  Sex: Female
  Weight: 108.84 kg

DRUGS (7)
  1. LOVAZA [Concomitant]
     Dosage: UNK
  2. METFORMIN HCL [Concomitant]
     Indication: DIABETES MELLITUS
     Dosage: UNK
  3. PHENYLEPHRINE HCL [Suspect]
     Indication: INFLUENZA
  4. CHOLESTEROL- AND TRIGLYCERIDE REDUCERS [Concomitant]
     Indication: BLOOD CHOLESTEROL INCREASED
     Dosage: UNK
  5. DRUG THERAPY NOS [Concomitant]
     Dosage: UNK
  6. PHENYLEPHRINE HCL [Suspect]
     Indication: SINUS CONGESTION
     Dosage: UNK, 2 BOTTLES/WEEK
     Route: 045
  7. PHENYLEPHRINE HCL [Suspect]
     Indication: NASOPHARYNGITIS
     Dosage: 3 SQUIRTS, EVERY 2 HOURS
     Route: 045

REACTIONS (7)
  - OVERDOSE [None]
  - ABDOMINAL DISCOMFORT [None]
  - THERAPEUTIC RESPONSE UNEXPECTED [None]
  - DRUG DEPENDENCE [None]
  - DRUG ABUSE [None]
  - INCORRECT DRUG ADMINISTRATION DURATION [None]
  - TENDONITIS [None]
